FAERS Safety Report 9524601 (Version 3)
Quarter: 2013Q4

REPORT INFORMATION
  Report Type: Spontaneous
  Country: US (occurrence: US)
  Receive Date: 20130916
  Receipt Date: 20131021
  Transmission Date: 20140711
  Serious: No
  Sender: FDA-Public Use
  Company Number: US-PFIZER INC-2013263019

PATIENT
  Age: 59 Year
  Sex: Female
  Weight: 95.24 kg

DRUGS (3)
  1. LYRICA [Suspect]
     Indication: FIBROMYALGIA
     Dosage: UNK
  2. ATIVAN [Suspect]
     Indication: SLEEP DISORDER
     Dosage: UNK, 3X/DAY
  3. ATIVAN [Suspect]
     Indication: ANXIETY

REACTIONS (2)
  - Intentional drug misuse [Unknown]
  - Speech disorder [Unknown]
